FAERS Safety Report 8960746 (Version 1)
Quarter: 2012Q4

REPORT INFORMATION
  Report Type: 
  Country: JP (occurrence: JP)
  Receive Date: 20121213
  Receipt Date: 20121213
  Transmission Date: 20130627
  Serious: Yes (Death, Other)
  Sender: FDA-Public Use
  Company Number: JP-009507513-2010SP024015

PATIENT
  Age: 35 Year
  Sex: Female
  Weight: 53 kg

DRUGS (23)
  1. TEMOZOLOMIDE [Suspect]
     Indication: ANAPLASTIC ASTROCYTOMA
     Dosage: 75 mg/m2, qd
     Dates: start: 20081030, end: 20090125
  2. TEMOZOLOMIDE [Suspect]
     Dosage: 150 mg/m2, qd
     Route: 048
     Dates: start: 20090227, end: 20090303
  3. TEMOZOLOMIDE [Suspect]
     Dosage: 200 mg/m2, qd
     Route: 048
     Dates: start: 20090327, end: 20090331
  4. TEMOZOLOMIDE [Suspect]
     Dosage: 200 mg/m2, qd
     Route: 048
     Dates: start: 20090424, end: 20090428
  5. TEMOZOLOMIDE [Suspect]
     Dosage: 200 mg/m2, qd
     Route: 048
     Dates: start: 20090522, end: 20090526
  6. TEMOZOLOMIDE [Suspect]
     Dosage: 200 mg/m2, qd
     Route: 048
     Dates: start: 20090622, end: 20090626
  7. TEMOZOLOMIDE [Suspect]
     Dosage: 200 mg/m2, qd
     Route: 048
     Dates: start: 20090720, end: 20090724
  8. TEMOZOLOMIDE [Suspect]
     Dosage: 200 mg/m2, qd
     Route: 048
     Dates: start: 20090817, end: 20090821
  9. TEMOZOLOMIDE [Suspect]
     Dosage: 200 mg/m2, qd
     Route: 048
     Dates: start: 20090914, end: 20090918
  10. TEMOZOLOMIDE [Suspect]
     Dosage: 150 mg/m2, qd
     Route: 048
     Dates: start: 20091020, end: 20091024
  11. TEMOZOLOMIDE [Suspect]
     Dosage: 150 mg/m2, qd
     Route: 048
     Dates: start: 20091119, end: 20091123
  12. TEMOZOLOMIDE [Suspect]
     Dosage: 150 mg/m2, qd
     Route: 048
     Dates: start: 20091219, end: 20091221
  13. TEMOZOLOMIDE [Suspect]
     Dosage: 150 mg/m2, qd
     Route: 048
     Dates: start: 20101226, end: 20101230
  14. TEMOZOLOMIDE [Suspect]
     Dosage: 200 mg/m2, qd
     Route: 048
     Dates: start: 20110129, end: 20110202
  15. TEMOZOLOMIDE [Suspect]
     Dosage: 200 mg/m2, qd
     Route: 048
     Dates: start: 20110226, end: 20110302
  16. EXCEGRAN [Suspect]
     Route: 048
     Dates: start: 20081030, end: 20101115
  17. BAKTAR [Concomitant]
     Indication: ANTIFUNGAL PROPHYLAXIS
     Route: 048
     Dates: start: 20081220, end: 20090130
  18. ZOFRAN [Concomitant]
     Indication: PROPHYLAXIS
     Route: 048
     Dates: start: 20081215, end: 20091221
  19. MAGNESIUM OXIDE [Concomitant]
     Indication: PROPHYLAXIS
     Route: 048
     Dates: start: 20081215, end: 20090116
  20. MUCOSTA [Concomitant]
     Route: 048
     Dates: start: 20081127, end: 20090325
  21. PRIMPERAN [Concomitant]
     Indication: PROPHYLAXIS
     Route: 048
     Dates: start: 20081219, end: 20100216
  22. PAXIL [Concomitant]
     Indication: PROPHYLAXIS
     Dosage: UNK
     Dates: start: 20090113, end: 20101115
  23. DEPAS [Concomitant]
     Dosage: UNK
     Route: 048
     Dates: start: 20081224, end: 20090207

REACTIONS (11)
  - Disease progression [Fatal]
  - Lymphocyte count decreased [Not Recovered/Not Resolved]
  - Protein total decreased [Not Recovered/Not Resolved]
  - Blood chloride increased [Not Recovered/Not Resolved]
  - Blood urea decreased [Recovered/Resolved]
  - Headache [Not Recovered/Not Resolved]
  - Anaemia [Not Recovered/Not Resolved]
  - White blood cell count decreased [Not Recovered/Not Resolved]
  - Neutrophil count decreased [Recovering/Resolving]
  - Platelet count decreased [Not Recovered/Not Resolved]
  - Alanine aminotransferase increased [Recovered/Resolved]
